FAERS Safety Report 21037787 (Version 2)
Quarter: 2022Q3

REPORT INFORMATION
  Report Type: Report from Study
  Country: US (occurrence: US)
  Receive Date: 20220704
  Receipt Date: 20220707
  Transmission Date: 20221027
  Serious: Yes (Death, Hospitalization, Other)
  Sender: FDA-Public Use
  Company Number: US-BoehringerIngelheim-2022-BI-157555

PATIENT
  Age: 70 Year
  Sex: Male

DRUGS (2)
  1. OFEV [Suspect]
     Active Substance: NINTEDANIB
     Indication: Interstitial lung disease
     Route: 048
     Dates: start: 20220301
  2. OFEV [Suspect]
     Active Substance: NINTEDANIB
     Indication: Idiopathic pulmonary fibrosis

REACTIONS (13)
  - Idiopathic pulmonary fibrosis [Fatal]
  - Acute respiratory failure [Fatal]
  - Abdominal pain upper [Unknown]
  - Abdominal discomfort [Recovered/Resolved]
  - Pulmonary embolism [Unknown]
  - Sepsis [Unknown]
  - Pneumonia [Unknown]
  - Dyspnoea [Unknown]
  - Interstitial lung disease [Unknown]
  - Constipation [Recovered/Resolved]
  - Nausea [Not Recovered/Not Resolved]
  - Hypophagia [Unknown]
  - General physical health deterioration [Not Recovered/Not Resolved]

NARRATIVE: CASE EVENT DATE: 20220316
